FAERS Safety Report 22388285 (Version 1)
Quarter: 2023Q2

REPORT INFORMATION
  Report Type: Spontaneous
  Country: NL (occurrence: NL)
  Receive Date: 20230531
  Receipt Date: 20230531
  Transmission Date: 20230721
  Serious: Yes (Other)
  Sender: FDA-Public Use
  Company Number: None

PATIENT

DRUGS (1)
  1. LAMOTRIGINE [Suspect]
     Active Substance: LAMOTRIGINE
     Indication: Epilepsy
     Dosage: 100 MG, QD,1X PER DAY 1 PIECE
     Route: 065
     Dates: start: 20230316

REACTIONS (3)
  - Syncope [Recovering/Resolving]
  - Chest pain [Recovering/Resolving]
  - Breath holding [Recovering/Resolving]
